APPROVED DRUG PRODUCT: DEXAMETHASONE ACETATE
Active Ingredient: DEXAMETHASONE ACETATE
Strength: EQ 16MG BASE/ML
Dosage Form/Route: INJECTABLE;INJECTION
Application: A087711 | Product #001
Applicant: WATSON LABORATORIES INC AN INDIRECT WHOLLY OWNED SUB OF TEVA PHARMACEUTICALS USA INC
Approved: May 24, 1982 | RLD: No | RS: No | Type: DISCN